FAERS Safety Report 7096470-3 (Version None)
Quarter: 2010Q4

REPORT INFORMATION
  Report Type: 
  Country: None (occurrence: None)
  Receive Date: 20101111
  Receipt Date: 20101028
  Transmission Date: 20110411
  Serious: Yes (Hospitalization)
  Sender: FDA-Public Use
  Company Number: US-AMGEN-USACT2010003241

PATIENT
  Sex: Male
  Weight: 66.5 kg

DRUGS (3)
  1. PANITUMUMAB [Suspect]
     Indication: OESOPHAGEAL ADENOCARCINOMA
     Dosage: 6 MG/KG, UNK
     Dates: start: 20100728
  2. CISPLATIN [Suspect]
     Dosage: 40 MG/M2, UNK
     Dates: start: 20100728
  3. DOCETAXEL [Suspect]
     Dosage: 40 MG/M2, UNK
     Dates: start: 20100728

REACTIONS (9)
  - ANXIETY [None]
  - DEHYDRATION [None]
  - FAILURE TO THRIVE [None]
  - HYPONATRAEMIA [None]
  - INSOMNIA [None]
  - NEUROTOXICITY [None]
  - OESOPHAGEAL ULCER [None]
  - PERIPHERAL SENSORY NEUROPATHY [None]
  - RASH [None]
